FAERS Safety Report 5046605-9 (Version None)
Quarter: 2006Q3

REPORT INFORMATION
  Report Type: 
  Country: None (occurrence: None)
  Receive Date: 20060707
  Receipt Date: 20060707
  Transmission Date: 20061208
  Serious: Yes (Hospitalization)
  Sender: FDA-Public Use
  Company Number: None

PATIENT
  Age: 59 Year
  Sex: Male

DRUGS (9)
  1. GOODY'S POWDER ASPIRIN 500 MG/ACETAMINOPHEN325M [Suspect]
     Indication: CHEST DISCOMFORT
     Dosage: 2-4 PACKS DAILY PO
     Route: 048
     Dates: start: 20060406, end: 20060427
  2. ALBUTEROL SULFATE AND IPRATROPIUM BROMIDE [Concomitant]
  3. CODEINE 10 MG /GUAIFENESIN [Concomitant]
  4. EPOETIN ALFA [Concomitant]
  5. MEGESTROL ACETATE [Concomitant]
  6. OMEPRAZOLE [Concomitant]
  7. ONDANSETRON HCL [Concomitant]
  8. OXYMETAZOLINE [Concomitant]
  9. PREDNISONE [Concomitant]

REACTIONS (3)
  - HAEMATOCHEZIA [None]
  - HAEMATOCRIT DECREASED [None]
  - HAEMOPTYSIS [None]
